FAERS Safety Report 9973670 (Version 3)
Quarter: 2014Q2

REPORT INFORMATION
  Report Type: Spontaneous
  Country: IT (occurrence: IT)
  Receive Date: 20140306
  Receipt Date: 20140418
  Transmission Date: 20141212
  Serious: Yes (Hospitalization)
  Sender: FDA-Public Use
  Company Number: IT-ASTRAZENECA-2014SE15452

PATIENT
  Age: 8219 Day
  Sex: Female

DRUGS (3)
  1. SEROQUEL [Suspect]
     Indication: INTENTIONAL SELF-INJURY
     Dosage: 20 DF, 100MG FILM COATED TABLETS ONCE
     Route: 048
     Dates: start: 20140225, end: 20140225
  2. VENLAFAXINE [Suspect]
     Indication: INTENTIONAL SELF-INJURY
     Dosage: 525 MG ONCE
     Route: 048
     Dates: start: 20140225, end: 20140225
  3. AKINETON [Suspect]
     Indication: INTENTIONAL SELF-INJURY
     Dosage: 40 DF, 4MG PROLONGED RELEASE TABLETS ONCE
     Route: 048
     Dates: start: 20140225, end: 20140225

REACTIONS (2)
  - Drug abuse [Recovered/Resolved]
  - Coma [Recovered/Resolved]
